FAERS Safety Report 6215737-1 (Version None)
Quarter: 2009Q2

REPORT INFORMATION
  Report Type: 
  Country: None (occurrence: None)
  Receive Date: 20090603
  Receipt Date: 20090522
  Transmission Date: 20091009
  Serious: Yes (Death, Hospitalization)
  Sender: FDA-Public Use
  Company Number: 090505-0000684

PATIENT
  Age: 19 Month
  Sex: Male
  Weight: 16 kg

DRUGS (9)
  1. COSMEGEN [Suspect]
     Indication: RENAL NEOPLASM
     Dosage: ;QW; IV
     Route: 042
     Dates: start: 20070827, end: 20070827
  2. COSMEGEN [Suspect]
     Indication: RENAL NEOPLASM
     Dosage: ;QW; IV
     Route: 042
     Dates: start: 20070910, end: 20070910
  3. VINCRISTINE [Suspect]
     Indication: RENAL NEOPLASM
     Dosage: 1.5 MG/M**2; QW; IV, ; QW;
     Route: 042
     Dates: start: 20070827, end: 20070827
  4. VINCRISTINE [Suspect]
     Indication: RENAL NEOPLASM
     Dosage: 1.5 MG/M**2; QW; IV, ; QW;
     Route: 042
     Dates: start: 20070903, end: 20070903
  5. VINCRISTINE [Suspect]
     Indication: RENAL NEOPLASM
     Dosage: 1.5 MG/M**2; QW; IV, ; QW;
     Route: 042
     Dates: start: 20070910, end: 20070910
  6. VINCRISTINE [Suspect]
     Indication: RENAL NEOPLASM
     Dosage: 1.5 MG/M**2; QW; IV, ; QW;
     Route: 042
     Dates: start: 20070917, end: 20070917
  7. HAMILTON ULTRABLOCK SPF 70 [Concomitant]
  8. EZILZX SYRUP (LACTULOSE) [Concomitant]
  9. ALKALINE MOUTH WASH [Concomitant]

REACTIONS (6)
  - BLOOD LACTIC ACID INCREASED [None]
  - CONSTIPATION [None]
  - HYPOGLYCAEMIA [None]
  - MULTI-ORGAN FAILURE [None]
  - TONSILLITIS [None]
  - VENOOCCLUSIVE LIVER DISEASE [None]
